FAERS Safety Report 7490871-7 (Version None)
Quarter: 2011Q2

REPORT INFORMATION
  Report Type: 
  Country: None (occurrence: None)
  Receive Date: 20110519
  Receipt Date: 20110512
  Transmission Date: 20111010
  Serious: Yes (Hospitalization, Other)
  Sender: FDA-Public Use
  Company Number: CH-BAXTER-2011BH016184

PATIENT
  Age: 47 Year
  Sex: Female
  Weight: 53 kg

DRUGS (5)
  1. CYTARABINE [Suspect]
     Indication: BURKITT'S LYMPHOMA
     Route: 038
     Dates: start: 20101218
  2. DOXORUBICIN HCL [Suspect]
     Indication: BURKITT'S LYMPHOMA
     Route: 065
     Dates: start: 20101218
  3. VINCRISTINE SULFATE [Suspect]
     Indication: BURKITT'S LYMPHOMA
     Route: 065
     Dates: start: 20101218
  4. CYCLOPHOSPHAMIDE [Suspect]
     Indication: BURKITT'S LYMPHOMA
     Route: 065
     Dates: start: 20101218
  5. RITUXAN [Suspect]
     Indication: BURKITT'S LYMPHOMA
     Route: 065
     Dates: start: 20101218

REACTIONS (1)
  - BACK PAIN [None]
